FAERS Safety Report 4463294-2 (Version None)
Quarter: 2004Q3

REPORT INFORMATION
  Report Type: 
  Country: None (occurrence: None)
  Receive Date: 20040930
  Receipt Date: 20040609
  Transmission Date: 20050211
  Serious: No
  Sender: FDA-Public Use
  Company Number: US-BRISTOL-MYERS SQUIBB COMPANY-12633657

PATIENT
  Age: 45 Year
  Sex: Male

DRUGS (4)
  1. ATAZANAVIR [Suspect]
     Indication: HIV INFECTION
  2. RITONAVIR [Suspect]
     Indication: HIV INFECTION
  3. LAMIVUDINE [Suspect]
     Indication: HIV INFECTION
  4. TENOFOVIR DF [Suspect]
     Indication: HIV INFECTION

REACTIONS (3)
  - BLOOD BILIRUBIN INCREASED [None]
  - JAUNDICE [None]
  - OCULAR ICTERUS [None]
